FAERS Safety Report 8878799 (Version 2)
Quarter: 2012Q4

REPORT INFORMATION
  Report Type: 
  Country: US (occurrence: US)
  Receive Date: 20121026
  Receipt Date: 20121112
  Transmission Date: 20130627
  Serious: Yes (Hospitalization)
  Sender: FDA-Public Use
  Company Number: US-ROCHE-1148860

PATIENT
  Age: 50 Year
  Sex: Female
  Weight: 114.41 kg

DRUGS (13)
  1. PEGASYS [Suspect]
     Indication: HEPATITIS C
     Route: 058
     Dates: start: 20120627, end: 20120923
  2. RIBAVIRIN [Suspect]
     Indication: HEPATITIS C
     Route: 048
     Dates: start: 20120627, end: 20120923
  3. INCIVEK [Suspect]
     Indication: HEPATITIS C
     Route: 048
     Dates: start: 20120627, end: 20120923
  4. JANUVIA [Concomitant]
  5. LASIX [Concomitant]
  6. TEGRETOL [Concomitant]
  7. PREDNISONE [Concomitant]
  8. CELLCEPT [Concomitant]
  9. LEXAPRO [Concomitant]
  10. RISPERDAL [Concomitant]
  11. HYDROCHLOROTHIAZIDE [Concomitant]
  12. ACTOS [Concomitant]
  13. METOPROLOL [Concomitant]

REACTIONS (3)
  - Pneumonia [Recovered/Resolved]
  - Deep vein thrombosis [Unknown]
  - Pulmonary embolism [Unknown]
